FAERS Safety Report 8904545 (Version 5)
Quarter: 2013Q1

REPORT INFORMATION
  Report Type: Spontaneous
  Country: NL (occurrence: NL)
  Receive Date: 20121113
  Receipt Date: 20130204
  Transmission Date: 20140127
  Serious: Yes (Death)
  Sender: FDA-Public Use
  Company Number: NL-ELI_LILLY_AND_COMPANY-NL201211002027

PATIENT
  Age: 54 Year
  Sex: Female
  Weight: 58 kg

DRUGS (3)
  1. CYMBALTA [Suspect]
     Indication: DEPRESSION
     Dosage: 30 MG, QD
     Route: 048
     Dates: start: 20121001
  2. ZYPREXA [Suspect]
     Indication: DEPRESSION
     Dosage: 2.5 MG, UNKNOWN
     Route: 048
     Dates: start: 20120928
  3. ETHANOL [Concomitant]

REACTIONS (4)
  - Completed suicide [Fatal]
  - Feeling abnormal [Unknown]
  - Restlessness [Unknown]
  - Alcohol withdrawal syndrome [Unknown]
